FAERS Safety Report 12328782 (Version 1)
Quarter: 2016Q2

REPORT INFORMATION
  Report Type: Spontaneous
  Country: US (occurrence: US)
  Receive Date: 20160503
  Receipt Date: 20160503
  Transmission Date: 20160815
  Serious: No
  Sender: FDA-Public Use
  Company Number: US-BEH-2015050766

PATIENT
  Sex: Female
  Weight: 87 kg

DRUGS (21)
  1. ZITHROMAX [Concomitant]
     Active Substance: AZITHROMYCIN DIHYDRATE
  2. CYCLOBENZAPRINE [Concomitant]
     Active Substance: CYCLOBENZAPRINE
  3. ACETAMINOPHEN. [Concomitant]
     Active Substance: ACETAMINOPHEN
  4. MYLANTA [Concomitant]
     Active Substance: ALUMINUM HYDROXIDE\DIMETHICONE\MAGNESIUM HYDROXIDE
  5. TERCONAZOLE CREAM [Concomitant]
  6. LAMICTAL [Concomitant]
     Active Substance: LAMOTRIGINE
  7. DIPHENHYDRAMINE. [Concomitant]
     Active Substance: DIPHENHYDRAMINE
  8. ROBAXIN [Concomitant]
     Active Substance: METHOCARBAMOL
  9. VALIUM [Concomitant]
     Active Substance: DIAZEPAM
  10. PREVACID [Concomitant]
     Active Substance: LANSOPRAZOLE
  11. XANAX [Concomitant]
     Active Substance: ALPRAZOLAM
  12. PROZAC [Concomitant]
     Active Substance: FLUOXETINE HYDROCHLORIDE
  13. VICOPROFEN [Concomitant]
     Active Substance: HYDROCODONE BITARTRATE\IBUPROFEN
  14. VITAMIN D [Concomitant]
     Active Substance: CHOLECALCIFEROL
  15. DIFLUCAN [Concomitant]
     Active Substance: FLUCONAZOLE
  16. ALLERGY SHOTS [Concomitant]
     Active Substance: UNSPECIFIED INGREDIENT
  17. HIZENTRA [Suspect]
     Active Substance: HUMAN IMMUNOGLOBULIN G
     Indication: HYPOGAMMAGLOBULINAEMIA
     Route: 058
  18. LIDOCAINE. [Concomitant]
     Active Substance: LIDOCAINE
  19. LIDOCAINE/PRILOCAINE [Concomitant]
  20. EPIPEN [Concomitant]
     Active Substance: EPINEPHRINE
  21. LISINOPRIL-HCTZ [Concomitant]
     Active Substance: HYDROCHLOROTHIAZIDE\LISINOPRIL

REACTIONS (2)
  - Injection site induration [Unknown]
  - Sinusitis [Unknown]
